FAERS Safety Report 4299577-9 (Version None)
Quarter: 2004Q1

REPORT INFORMATION
  Report Type: 
  Country: None (occurrence: None)
  Receive Date: 20040219
  Receipt Date: 20031104
  Transmission Date: 20041129
  Serious: Yes (Hospitalization)
  Sender: FDA-Public Use
  Company Number: US-BRISTOL-MYERS SQUIBB COMPANY-12428140

PATIENT
  Age: 40 Year
  Sex: Female

DRUGS (6)
  1. CARBOPLATIN [Suspect]
     Indication: OVARIAN CANCER
     Route: 042
     Dates: start: 20031027, end: 20031027
  2. PACLITAXEL [Suspect]
     Indication: OVARIAN CANCER
     Route: 042
     Dates: start: 20031027, end: 20031027
  3. CETUXIMAB [Suspect]
     Indication: OVARIAN CANCER
     Route: 042
     Dates: start: 20031027, end: 20031027
  4. PERCOCET [Concomitant]
     Dates: start: 20031008
  5. VALIUM [Concomitant]
     Dates: start: 20031008
  6. ZANTAC [Concomitant]
     Dates: start: 20031008

REACTIONS (4)
  - CHOLELITHIASIS [None]
  - CONSTIPATION [None]
  - GASTRITIS [None]
  - PANCREATITIS [None]
